FAERS Safety Report 8019796-5 (Version None)
Quarter: 2012Q1

REPORT INFORMATION
  Report Type: 
  Country: None (occurrence: None)
  Receive Date: 20120103
  Receipt Date: 20120103
  Transmission Date: 20120608
  Serious: Yes (Disabling)
  Sender: FDA-Public Use
  Company Number: GB-BAYER-2012-000364

PATIENT
  Sex: Male

DRUGS (1)
  1. CIPROFLOXACIN HCL [Suspect]
     Indication: URINARY TRACT INFECTION
     Dosage: UNK UNK, IRR
     Dates: start: 20100101

REACTIONS (5)
  - ABDOMINAL PAIN [None]
  - JOINT CREPITATION [None]
  - MUSCLE ATROPHY [None]
  - ARTHRALGIA [None]
  - NERVE COMPRESSION [None]
